FAERS Safety Report 19956916 (Version 1)
Quarter: 2021Q4

REPORT INFORMATION
  Report Type: Spontaneous
  Country: US (occurrence: US)
  Receive Date: 20211014
  Receipt Date: 20211014
  Transmission Date: 20220303
  Serious: Yes (Other)
  Sender: FDA-Public Use
  Company Number: US-AMGEN-USASP2021155265

PATIENT
  Age: 70 Year
  Sex: Female

DRUGS (2)
  1. REPATHA [Suspect]
     Active Substance: EVOLOCUMAB
     Indication: Blood cholesterol increased
     Dosage: 140 MILLIGRAM, Q2WK
     Route: 065
  2. INSULIN NOS [Concomitant]
     Active Substance: INSULIN NOS

REACTIONS (6)
  - Carotid artery occlusion [Unknown]
  - Injection site pain [Unknown]
  - Device difficult to use [Unknown]
  - Product administered at inappropriate site [Unknown]
  - Wrong technique in product usage process [Unknown]
  - Injection site bruising [Unknown]

NARRATIVE: CASE EVENT DATE: 20210301
